FAERS Safety Report 19588597 (Version 1)
Quarter: 2021Q3

REPORT INFORMATION
  Report Type: Spontaneous
  Country: RO (occurrence: RO)
  Receive Date: 20210721
  Receipt Date: 20210721
  Transmission Date: 20211014
  Serious: Yes (Life-Threatening, Hospitalization, Other)
  Sender: FDA-Public Use
  Company Number: RO-ALVOGEN-2021-ALVOGEN-117248

PATIENT
  Age: 47 Year

DRUGS (2)
  1. AMIODARONE [Suspect]
     Active Substance: AMIODARONE
     Indication: SUICIDE ATTEMPT
  2. FLECAINIDE [Suspect]
     Active Substance: FLECAINIDE
     Indication: SUICIDE ATTEMPT
     Route: 048

REACTIONS (6)
  - Ventricular tachycardia [Recovered/Resolved]
  - Drug interaction [Recovered/Resolved]
  - Cardiotoxicity [Recovered/Resolved]
  - Atrioventricular block first degree [Recovered/Resolved]
  - Electrocardiogram QRS complex prolonged [Recovered/Resolved]
  - Toxicity to various agents [Recovered/Resolved]
